FAERS Safety Report 23396721 (Version 2)
Quarter: 2024Q1

REPORT INFORMATION
  Report Type: Spontaneous
  Country: FR (occurrence: FR)
  Receive Date: 20240112
  Receipt Date: 20240207
  Transmission Date: 20240410
  Serious: Yes (Hospitalization, Other)
  Sender: FDA-Public Use
  Company Number: FR-EXPCORP-2023000778

PATIENT
  Age: 16 Year
  Sex: Female

DRUGS (1)
  1. DOXYCYCLINE [Suspect]
     Active Substance: DOXYCYCLINE
     Indication: Acne
     Dosage: 100 MILLIGRAM
     Route: 065

REACTIONS (3)
  - Substance-induced psychotic disorder [Recovered/Resolved]
  - Suicide attempt [Recovered/Resolved]
  - Off label use [Unknown]
